FAERS Safety Report 5329704-3 (Version None)
Quarter: 2007Q2

REPORT INFORMATION
  Report Type: 
  Country: None (occurrence: None)
  Receive Date: 20070515
  Receipt Date: 20070509
  Transmission Date: 20071010
  Serious: No
  Sender: FDA-Public Use
  Company Number: 2007-158413-NL

PATIENT
  Age: 47 Year
  Sex: Female

DRUGS (2)
  1. ETONOGESTREL [Suspect]
     Dosage: DF
     Dates: start: 20030101, end: 20060101
  2. ETONOGESTREL [Suspect]
     Dosage: DF
     Dates: start: 20060101, end: 20070101

REACTIONS (1)
  - BREAST CANCER FEMALE [None]
